FAERS Safety Report 16884489 (Version 1)
Quarter: 2019Q4

REPORT INFORMATION
  Report Type: Spontaneous
  Country: JP (occurrence: JP)
  Receive Date: 20191004
  Receipt Date: 20191004
  Transmission Date: 20200122
  Serious: Yes (Hospitalization)
  Sender: FDA-Public Use
  Company Number: JP-ACCORD-156539

PATIENT
  Age: 63 Year
  Sex: Male
  Weight: 78 kg

DRUGS (2)
  1. CISPLATIN. [Suspect]
     Active Substance: CISPLATIN
     Indication: GASTRIC CANCER STAGE III
     Dosage: ADMINISTERED ON DAY 1
  2. IRINOTECAN [Suspect]
     Active Substance: IRINOTECAN
     Indication: GASTRIC CANCER STAGE III
     Dosage: ADMINISTERED ON DAY 15 AS A ONE COURSE,?ADMINISTERED EVERY 4 WEEKS

REACTIONS (4)
  - Staphylococcal infection [Recovering/Resolving]
  - Pyrexia [Recovering/Resolving]
  - Abscess [Recovered/Resolved]
  - Candida infection [Recovering/Resolving]

NARRATIVE: CASE EVENT DATE: 201301
